FAERS Safety Report 8542684-2 (Version None)
Quarter: 2012Q3

REPORT INFORMATION
  Report Type: 
  Country: None (occurrence: None)
  Receive Date: 20120727
  Receipt Date: 20120717
  Transmission Date: 20120928
  Serious: Yes (Hospitalization)
  Sender: FDA-Public Use
  Company Number: US-BIOGENIDEC-2011BI039310

PATIENT
  Age: 54 Year
  Sex: Female

DRUGS (1)
  1. TYSABRI [Suspect]
     Indication: MULTIPLE SCLEROSIS
     Route: 042
     Dates: start: 20091030

REACTIONS (5)
  - OESOPHAGEAL CANDIDIASIS [None]
  - STREPTOCOCCAL INFECTION [None]
  - BRONCHITIS [None]
  - CANDIDIASIS [None]
  - LOCALISED INFECTION [None]
